FAERS Safety Report 16000799 (Version 1)
Quarter: 2019Q1

REPORT INFORMATION
  Report Type: Spontaneous
  Country: US (occurrence: US)
  Receive Date: 20190225
  Receipt Date: 20190225
  Transmission Date: 20190418
  Serious: No
  Sender: FDA-Public Use
  Company Number: US-B. BRAUN MEDICAL INC.-2063163

PATIENT
  Sex: Female

DRUGS (1)
  1. CLOROTEKAL [Suspect]
     Active Substance: CHLOROPROCAINE HYDROCHLORIDE

REACTIONS (1)
  - Drug ineffective [None]
